FAERS Safety Report 18784712 (Version 1)
Quarter: 2021Q1

REPORT INFORMATION
  Report Type: Spontaneous
  Country: US (occurrence: US)
  Receive Date: 20210125
  Receipt Date: 20210125
  Transmission Date: 20210419
  Serious: Yes (Other)
  Sender: FDA-Public Use
  Company Number: US-THERAPEUTICSMD-2021TMD00199

PATIENT
  Age: 68 Year
  Sex: Female
  Weight: 65.76 kg

DRUGS (1)
  1. IMVEXXY [Suspect]
     Active Substance: ESTRADIOL
     Dosage: UNK
     Route: 067

REACTIONS (5)
  - Vaginal discharge [Not Recovered/Not Resolved]
  - Hysterectomy [Recovered/Resolved]
  - Product residue present [Not Recovered/Not Resolved]
  - Breast cancer [Recovered/Resolved]
  - Product use complaint [Not Recovered/Not Resolved]

NARRATIVE: CASE EVENT DATE: 2020
